FAERS Safety Report 9487171 (Version 1)
Quarter: 2013Q3

REPORT INFORMATION
  Report Type: Spontaneous
  Country: BR (occurrence: BR)
  Receive Date: 20130829
  Receipt Date: 20130829
  Transmission Date: 20140515
  Serious: Yes (Other)
  Sender: FDA-Public Use
  Company Number: BR-BRISTOL-MYERS SQUIBB COMPANY-19208958

PATIENT
  Age: 13 Year
  Sex: Male
  Weight: 55 kg

DRUGS (4)
  1. HYDREA CAPS [Suspect]
     Indication: SICKLE CELL ANAEMIA
     Dosage: 1DF:1 CAPS
     Route: 048
     Dates: start: 2007
  2. ARIPIPRAZOLE [Suspect]
     Indication: PSYCHOTIC DISORDER
     Dosage: OCT12:/4 OF THE 15MG TAB IN THE BEGINNING AND NOWADAYS HE WAS WITH HALF OF THE 15MG TAB.?ARISTAB
     Dates: start: 2012
  3. ARIPIPRAZOLE [Suspect]
     Indication: PARANOIA
     Dosage: OCT12:/4 OF THE 15MG TAB IN THE BEGINNING AND NOWADAYS HE WAS WITH HALF OF THE 15MG TAB.?ARISTAB
     Dates: start: 2012
  4. OLANZAPINE [Suspect]

REACTIONS (3)
  - Psychotic disorder [Unknown]
  - Thrombocytopenia [Unknown]
  - Somnolence [Unknown]
